FAERS Safety Report 7773598-3 (Version None)
Quarter: 2011Q3

REPORT INFORMATION
  Report Type: 
  Country: None (occurrence: None)
  Receive Date: 20110923
  Receipt Date: 20110920
  Transmission Date: 20111222
  Serious: Yes (Hospitalization)
  Sender: FDA-Public Use
  Company Number: US-BIOGENIDEC-2011BI035030

PATIENT
  Age: 66 Year
  Sex: Male

DRUGS (1)
  1. TYSABRI [Suspect]
     Indication: MULTIPLE SCLEROSIS
     Route: 042
     Dates: start: 20101112, end: 20110729

REACTIONS (4)
  - BURSITIS [None]
  - DRUG HYPERSENSITIVITY [None]
  - ARTHRITIS BACTERIAL [None]
  - CELLULITIS [None]
